FAERS Safety Report 20472378 (Version 1)
Quarter: 2022Q1

REPORT INFORMATION
  Report Type: Spontaneous
  Country: FI (occurrence: FI)
  Receive Date: 20220215
  Receipt Date: 20220215
  Transmission Date: 20220424
  Serious: Yes (Other)
  Sender: FDA-Public Use
  Company Number: FI-002147023-NVSC2022FI018174

PATIENT
  Age: 8 Year
  Sex: Male

DRUGS (1)
  1. DASATINIB [Suspect]
     Active Substance: DASATINIB
     Indication: Philadelphia chromosome positive
     Dosage: UNK
     Route: 065

REACTIONS (2)
  - Minimal residual disease [Unknown]
  - Therapeutic product effect decreased [Unknown]
